FAERS Safety Report 12453684 (Version 3)
Quarter: 2016Q3

REPORT INFORMATION
  Report Type: Spontaneous
  Country: US (occurrence: US)
  Receive Date: 20160609
  Receipt Date: 20160708
  Transmission Date: 20161109
  Serious: Yes (Hospitalization)
  Sender: FDA-Public Use
  Company Number: US-BAUSCH-BL-2016-013550

PATIENT
  Sex: Female

DRUGS (4)
  1. VALIUM [Concomitant]
     Active Substance: DIAZEPAM
     Indication: MENIERE^S DISEASE
     Route: 048
  2. FLUOROURACIL (FOLFOX) [Suspect]
     Active Substance: FLUOROURACIL
     Indication: HEPATIC CANCER
     Route: 065
     Dates: start: 201505, end: 2015
  3. CALCIUM FOLINATE (FOLFOX) [Suspect]
     Active Substance: LEUCOVORIN CALCIUM
     Indication: PRODUCT USED FOR UNKNOWN INDICATION
     Route: 065
     Dates: start: 201505
  4. OXALIPLATIN (FOLFOX) [Suspect]
     Active Substance: OXALIPLATIN
     Indication: PRODUCT USED FOR UNKNOWN INDICATION
     Route: 065
     Dates: start: 201505

REACTIONS (3)
  - Memory impairment [Not Recovered/Not Resolved]
  - Transient ischaemic attack [Recovered/Resolved]
  - Alopecia [Recovering/Resolving]

NARRATIVE: CASE EVENT DATE: 2015
